FAERS Safety Report 20111712 (Version 1)
Quarter: 2021Q4

REPORT INFORMATION
  Report Type: Spontaneous
  Country: US (occurrence: US)
  Receive Date: 20211125
  Receipt Date: 20211125
  Transmission Date: 20220303
  Serious: No
  Sender: FDA-Public Use
  Company Number: MIQ-08302021-2925

PATIENT

DRUGS (3)
  1. IVERMECTIN [Suspect]
     Active Substance: IVERMECTIN
     Indication: COVID-19 prophylaxis
     Dosage: 3 MG, EVEY OTHER WEEK
     Route: 065
     Dates: start: 2021
  2. IVERMECTIN [Suspect]
     Active Substance: IVERMECTIN
     Dosage: 3 MG, SINGLE
     Route: 065
     Dates: start: 2021
  3. HYDROXYCHLOROQUINE [Concomitant]
     Active Substance: HYDROXYCHLOROQUINE
     Indication: COVID-19 prophylaxis
     Dosage: UNK
     Route: 065
     Dates: start: 2021

REACTIONS (1)
  - Product use in unapproved indication [Not Recovered/Not Resolved]

NARRATIVE: CASE EVENT DATE: 20210101
